FAERS Safety Report 7652428-4 (Version None)
Quarter: 2011Q3

REPORT INFORMATION
  Report Type: 
  Country: None (occurrence: None)
  Receive Date: 20110803
  Receipt Date: 20110720
  Transmission Date: 20111222
  Serious: Yes (Life-Threatening, Hospitalization, Other)
  Sender: FDA-Public Use
  Company Number: DE-ELI_LILLY_AND_COMPANY-DE201107005194

PATIENT
  Age: 75 Year
  Sex: Male

DRUGS (5)
  1. ALCOHOL [Concomitant]
  2. CALCIUM ACETATE [Concomitant]
  3. FORTEO [Suspect]
     Indication: OSTEOPOROSIS
     Dosage: UNK, QD
     Route: 058
     Dates: start: 20100421, end: 20110601
  4. VITAMIN D [Concomitant]
  5. MORPHINE [Concomitant]

REACTIONS (9)
  - ARTERIOSCLEROSIS CORONARY ARTERY [None]
  - ALCOHOL WITHDRAWAL SYNDROME [None]
  - HEPATIC FAILURE [None]
  - HOSPITALISATION [None]
  - HAEMORRHAGE [None]
  - INTESTINAL OPERATION [None]
  - PNEUMONIA [None]
  - RENAL FAILURE [None]
  - DRUG WITHDRAWAL SYNDROME [None]
